FAERS Safety Report 10291173 (Version 5)
Quarter: 2015Q1

REPORT INFORMATION
  Report Type: Spontaneous
  Country: US (occurrence: US)
  Receive Date: 20140710
  Receipt Date: 20150315
  Transmission Date: 20150720
  Serious: Yes (Congenital Anomaly, Other)
  Sender: FDA-Public Use
  Company Number: US-ELI_LILLY_AND_COMPANY-US201407002736

PATIENT
  Age: 0 Day

DRUGS (1)
  1. PROZAC [Suspect]
     Active Substance: FLUOXETINE HYDROCHLORIDE
     Indication: PRODUCT USED FOR UNKNOWN INDICATION
     Dosage: UNK, UNKNOWN
     Route: 064

REACTIONS (13)
  - Meconium stain [Unknown]
  - Atrial septal defect [Unknown]
  - Attention deficit/hyperactivity disorder [Unknown]
  - Small for dates baby [Unknown]
  - Epilepsy [Unknown]
  - Cerebral ventricle dilatation [Unknown]
  - Foetal heart rate deceleration abnormality [Unknown]
  - Foetal exposure during pregnancy [Recovered/Resolved]
  - Karyotype analysis abnormal [Unknown]
  - Growth retardation [Unknown]
  - Patent ductus arteriosus [Unknown]
  - Epilepsy [Unknown]
  - Hydrocephalus [Recovered/Resolved]

NARRATIVE: CASE EVENT DATE: 20061024
